FAERS Safety Report 23178938 (Version 3)
Quarter: 2024Q1

REPORT INFORMATION
  Report Type: Spontaneous
  Country: CA (occurrence: CA)
  Receive Date: 20231113
  Receipt Date: 20240129
  Transmission Date: 20240410
  Serious: Yes (Other)
  Sender: FDA-Public Use
  Company Number: CA-PFIZER INC-PV202200097314

PATIENT
  Age: 55 Year
  Sex: Male
  Weight: 65 kg

DRUGS (6)
  1. INLYTA [Suspect]
     Active Substance: AXITINIB
     Indication: Genitourinary symptom
     Dosage: 5 MG, 2X/DAY
     Route: 048
     Dates: start: 20221103
  2. INLYTA [Suspect]
     Active Substance: AXITINIB
     Dosage: 1 MG, 2X/DAY (RESTART AT LOWER DOSE, DOSE DECREASED- REASON NOT SPECIFIED))
     Route: 048
     Dates: start: 20230103
  3. INLYTA [Suspect]
     Active Substance: AXITINIB
     Dosage: 2 MG, 2X/DAY,BID FOR 42 DAYS (DOSE INCREASED- REASON NOT SPECIFIED)
     Route: 048
     Dates: start: 20230825
  4. KEYTRUDA [Concomitant]
     Active Substance: PEMBROLIZUMAB
     Dosage: UNK,Q42D
  5. LOPERAMIDE HYDROCHLORIDE [Concomitant]
     Active Substance: LOPERAMIDE HYDROCHLORIDE
     Dosage: 2 MG, AS NEEDED (QBM)
     Route: 048
  6. OLANZAPINE [Concomitant]
     Active Substance: OLANZAPINE
     Dosage: 2.5 MG, AS NEEDED (QID)
     Route: 048

REACTIONS (4)
  - Renal disorder [Unknown]
  - Adrenal disorder [Unknown]
  - Weight decreased [Recovering/Resolving]
  - Off label use [Unknown]

NARRATIVE: CASE EVENT DATE: 20220101
